FAERS Safety Report 7421811-4 (Version None)
Quarter: 2011Q2

REPORT INFORMATION
  Report Type: 
  Country: None (occurrence: None)
  Receive Date: 20110418
  Receipt Date: 20110414
  Transmission Date: 20111010
  Serious: Yes (Other)
  Sender: FDA-Public Use
  Company Number: FR-PFIZER INC-2011082151

PATIENT
  Age: 64 Year
  Sex: Female

DRUGS (2)
  1. TAHOR [Suspect]
     Dosage: UNK
     Dates: start: 20060101
  2. LEVOTHYROX [Concomitant]
     Dosage: UNK

REACTIONS (6)
  - MUSCLE SPASMS [None]
  - RED BLOOD CELL SEDIMENTATION RATE INCREASED [None]
  - C-REACTIVE PROTEIN INCREASED [None]
  - MYALGIA [None]
  - PRURITUS [None]
  - VITAMIN D DECREASED [None]
